FAERS Safety Report 25627804 (Version 2)
Quarter: 2025Q3

REPORT INFORMATION
  Report Type: Report from Study
  Country: DO (occurrence: DO)
  Receive Date: 20250731
  Receipt Date: 20250815
  Transmission Date: 20251020
  Serious: No
  Sender: EMD SERONO INC
  Company Number: DO-Merck Healthcare KGaA-2025037982

PATIENT
  Sex: Female

DRUGS (1)
  1. MAVENCLAD [Suspect]
     Active Substance: CLADRIBINE
     Indication: Multiple sclerosis

REACTIONS (1)
  - Discomfort [Not Recovered/Not Resolved]
